FAERS Safety Report 8767105 (Version 1)
Quarter: 2012Q4

REPORT INFORMATION
  Report Type: 
  Country: US (occurrence: US)
  Receive Date: 20120904
  Receipt Date: 20120904
  Transmission Date: 20130627
  Serious: Yes (Other)
  Sender: FDA-Public Use
  Company Number: 2012SP002441

PATIENT
  Age: 13 Year
  Sex: Female
  Weight: 81 kg

DRUGS (6)
  1. LATUDA [Suspect]
     Indication: BIPOLAR DISORDER
     Route: 048
     Dates: start: 2012
  2. LATUDA [Suspect]
     Indication: INTERMITTENT EXPLOSIVE DISORDER
     Route: 048
     Dates: start: 2012
  3. LITHIUM [Concomitant]
     Indication: BIPOLAR DISORDER
  4. TRAZODONE [Concomitant]
     Indication: INSOMNIA
  5. BENZOTROPINE [Concomitant]
     Indication: ADVERSE EVENT
  6. HALDOL /00027401/ [Concomitant]
     Indication: PRODUCT USED FOR UNKNOWN INDICATION
     Dates: end: 2012

REACTIONS (4)
  - Violence-related symptom [Not Recovered/Not Resolved]
  - Suicidal ideation [Not Recovered/Not Resolved]
  - Pallor [Not Recovered/Not Resolved]
  - Vomiting [Not Recovered/Not Resolved]
